FAERS Safety Report 16529322 (Version 1)
Quarter: 2019Q3

REPORT INFORMATION
  Report Type: Spontaneous
  Country: US (occurrence: US)
  Receive Date: 20190704
  Receipt Date: 20190704
  Transmission Date: 20191004
  Serious: No
  Sender: FDA-Public Use
  Company Number: US-GW PHARMA-201904USGW1197

PATIENT

DRUGS (3)
  1. EPIDIOLEX [Suspect]
     Active Substance: CANNABIDIOL
     Indication: LENNOX-GASTAUT SYNDROME
     Dosage: 200 MILLIGRAM, BID (2.25 MG/KG)
     Route: 048
     Dates: start: 20190129
  2. ONFI [Concomitant]
     Active Substance: CLOBAZAM
     Dosage: 20 MG, QH
     Route: 065
     Dates: start: 201902
  3. ONFI [Concomitant]
     Active Substance: CLOBAZAM
     Indication: ATONIC SEIZURES
     Dosage: 10 MG, QH
     Route: 065
     Dates: start: 201902, end: 2019

REACTIONS (2)
  - Dysarthria [Not Recovered/Not Resolved]
  - Therapeutic product effect incomplete [Unknown]

NARRATIVE: CASE EVENT DATE: 2019
